FAERS Safety Report 23059873 (Version 3)
Quarter: 2023Q4

REPORT INFORMATION
  Report Type: Report from Study
  Country: CN (occurrence: None)
  Receive Date: 20231012
  Receipt Date: 20231107
  Transmission Date: 20240110
  Serious: Yes (Hospitalization)
  Sender: FDA-Public Use
  Company Number: CN-ROCHE-3436601

PATIENT
  Age: 75 Year
  Sex: Female
  Weight: 55 kg

DRUGS (13)
  1. ATEZOLIZUMAB [Suspect]
     Active Substance: ATEZOLIZUMAB
     Indication: Lung adenocarcinoma
     Dosage: THE MOST RECENT DOSE PRIOR TO AE AND SAE WAS GIVEN ON 28/SEP/2023.
     Route: 041
     Dates: start: 20201105
  2. CARBOPLATIN [Suspect]
     Active Substance: CARBOPLATIN
     Indication: Lung adenocarcinoma
     Route: 042
     Dates: start: 20201105
  3. CARBOPLATIN [Suspect]
     Active Substance: CARBOPLATIN
     Dosage: THE MOST RECENT DOSE PRIOR TO AE AND SAE WAS TAKEN ON 08/JAN/2021 AT 1200 MG
     Route: 042
  4. BEVACIZUMAB [Suspect]
     Active Substance: BEVACIZUMAB
     Indication: Lung adenocarcinoma
     Dosage: THE MOST RECENT DOSE PRIOR TO AE AND SAE WAS TAKEN ON 19/MAY/2021 AT 825 MG.
     Route: 042
     Dates: start: 20201105
  5. PEMETREXED [Suspect]
     Active Substance: PEMETREXED
     Indication: Lung adenocarcinoma
     Route: 042
     Dates: start: 20201105
  6. PEMETREXED [Suspect]
     Active Substance: PEMETREXED
     Dosage: THE MOST RECENT DOSE TAKEN PRIOR TO AE AND SAE WAS ON 19/MAY/2021 AT 712.5 MG
     Route: 042
  7. BUDESONIDE [Concomitant]
     Active Substance: BUDESONIDE
     Indication: Asthma
  8. AMINOPHYLLINE [Concomitant]
     Active Substance: AMINOPHYLLINE
     Indication: Asthma
     Route: 067
  9. TERBUTALINE SULFATE [Concomitant]
     Active Substance: TERBUTALINE SULFATE
     Indication: Asthma
  10. OXACILLIN SODIUM [Concomitant]
     Active Substance: OXACILLIN SODIUM
  11. METHYLPREDNISOLONE SODIUM SUCCINATE [Concomitant]
     Active Substance: METHYLPREDNISOLONE SODIUM SUCCINATE
     Indication: Asthma
  12. FUROSEMIDE [Concomitant]
     Active Substance: FUROSEMIDE
  13. SPIRONOLACTONE [Concomitant]
     Active Substance: SPIRONOLACTONE

REACTIONS (1)
  - Asthma [Not Recovered/Not Resolved]

NARRATIVE: CASE EVENT DATE: 20231002
